FAERS Safety Report 6994548-3 (Version None)
Quarter: 2010Q3

REPORT INFORMATION
  Report Type: 
  Country: None (occurrence: None)
  Receive Date: 20100917
  Receipt Date: 20100909
  Transmission Date: 20110219
  Serious: Yes (Other)
  Sender: FDA-Public Use
  Company Number: US-AMGEN-QUU433910

PATIENT
  Sex: Male
  Weight: 83.4 kg

DRUGS (2)
  1. NPLATE [Suspect]
     Indication: IDIOPATHIC THROMBOCYTOPENIC PURPURA
     Dates: start: 20090201, end: 20091209
  2. CORTICOSTEROIDS [Concomitant]
     Dates: start: 20081125

REACTIONS (3)
  - ACUTE LYMPHOCYTIC LEUKAEMIA [None]
  - LARGE GRANULAR LYMPHOCYTOSIS [None]
  - THROMBOCYTOPENIA [None]
